FAERS Safety Report 9776998 (Version 2)
Quarter: 2014Q1

REPORT INFORMATION
  Report Type: Report from Study
  Country: FR (occurrence: FR)
  Receive Date: 20131221
  Receipt Date: 20140203
  Transmission Date: 20141002
  Serious: Yes (Hospitalization)
  Sender: FDA-Public Use
  Company Number: FR-ROCHE-1319816

PATIENT
  Sex: Female

DRUGS (14)
  1. RITUXIMAB [Suspect]
     Indication: RHEUMATOID ARTHRITIS
     Dosage: D1
     Route: 041
     Dates: start: 20061011
  2. RITUXIMAB [Suspect]
     Dosage: D 15
     Route: 041
     Dates: start: 20061025
  3. RITUXIMAB [Suspect]
     Dosage: D1
     Route: 041
     Dates: start: 20070426
  4. RITUXIMAB [Suspect]
     Dosage: D1
     Route: 041
     Dates: start: 20070510
  5. RITUXIMAB [Suspect]
     Dosage: D1
     Route: 041
     Dates: start: 20130114
  6. RITUXIMAB [Suspect]
     Dosage: D15
     Route: 041
     Dates: start: 20130131
  7. METHOTREXATE [Suspect]
     Indication: PRODUCT USED FOR UNKNOWN INDICATION
     Dosage: D1
     Route: 065
     Dates: start: 20061011
  8. METHOTREXATE [Suspect]
     Dosage: D15
     Route: 065
     Dates: start: 20061025
  9. METHOTREXATE [Suspect]
     Route: 065
     Dates: start: 20130114
  10. METHOTREXATE [Suspect]
     Route: 065
     Dates: start: 20130131
  11. CORTANCYL [Concomitant]
     Route: 065
  12. TAHOR [Concomitant]
     Route: 065
  13. SIMVASTATINE [Concomitant]
     Route: 065
  14. TAHOR [Concomitant]
     Route: 065

REACTIONS (17)
  - Goitre [Recovered/Resolved with Sequelae]
  - Lymphadenopathy [Unknown]
  - Epistaxis [Recovered/Resolved]
  - Vaginal discharge [Recovered/Resolved]
  - Pain in extremity [Not Recovered/Not Resolved]
  - Hyperkeratosis [Recovered/Resolved]
  - Lentigo [Recovered/Resolved]
  - Oropharyngeal pain [Unknown]
  - Osteoarthritis [Unknown]
  - Rotator cuff syndrome [Unknown]
  - Gastroenteritis [Recovered/Resolved]
  - Hypotension [Not Recovered/Not Resolved]
  - Cough [Not Recovered/Not Resolved]
  - Gastric disorder [Not Recovered/Not Resolved]
  - Asthenia [Not Recovered/Not Resolved]
  - Loose tooth [Not Recovered/Not Resolved]
  - Pain [Not Recovered/Not Resolved]
